FAERS Safety Report 9188829 (Version 1)
Quarter: 2013Q1

REPORT INFORMATION
  Report Type: Spontaneous
  Country: US (occurrence: US)
  Receive Date: 20130326
  Receipt Date: 20130326
  Transmission Date: 20140127
  Serious: Yes (Death)
  Sender: FDA-Public Use
  Company Number: CHPA2013US005131

PATIENT
  Age: 74 Year
  Sex: Male

DRUGS (1)
  1. THERAFLU VAPOR PATCH [Suspect]
     Indication: INCREASED VISCOSITY OF NASAL SECRETION
     Dosage: 2 DF, QD
     Route: 062
     Dates: start: 201210, end: 201212

REACTIONS (2)
  - Death [Fatal]
  - Off label use [Unknown]
